FAERS Safety Report 4453741-4 (Version None)
Quarter: 2004Q3

REPORT INFORMATION
  Report Type: 
  Country: None (occurrence: None)
  Receive Date: 20040920
  Receipt Date: 20040628
  Transmission Date: 20050211
  Serious: Yes (Hospitalization)
  Sender: FDA-Public Use
  Company Number: 200412207JP

PATIENT
  Age: 62 Year
  Sex: Male
  Weight: 58 kg

DRUGS (4)
  1. AMARYL [Suspect]
     Indication: DIABETES MELLITUS
     Route: 048
     Dates: start: 20040401, end: 20040410
  2. GASMOTIN [Suspect]
     Indication: DECREASED APPETITE
     Route: 048
     Dates: start: 20040401, end: 20040410
  3. BERIZYM [Suspect]
     Indication: DECREASED APPETITE
     Route: 048
     Dates: start: 20040401, end: 20040410
  4. ALOSENN [Suspect]
     Indication: CONSTIPATION
     Route: 048
     Dates: start: 20040401, end: 20040410

REACTIONS (5)
  - DRUG INEFFECTIVE [None]
  - EOSINOPHILIC PNEUMONIA [None]
  - FATIGUE [None]
  - HYPERGLYCAEMIA [None]
  - LYMPHOCYTE STIMULATION TEST POSITIVE [None]
